FAERS Safety Report 5722666-6 (Version None)
Quarter: 2008Q2

REPORT INFORMATION
  Report Type: 
  Country: None (occurrence: None)
  Receive Date: 20080429
  Receipt Date: 20071220
  Transmission Date: 20081010
  Serious: No
  Sender: FDA-Public Use
  Company Number: US-ASTRAZENECA-2007UW28743

PATIENT
  Age: 57 Year
  Sex: Female
  Weight: 55.8 kg

DRUGS (7)
  1. NEXIUM [Suspect]
     Indication: GASTROOESOPHAGEAL REFLUX DISEASE
     Route: 048
     Dates: start: 20071219
  2. NEXIUM [Suspect]
     Indication: OESOPHAGITIS
     Route: 048
     Dates: start: 20071219
  3. CELLCEPT [Concomitant]
  4. ALPHAGAN [Concomitant]
  5. ASPIRIN [Concomitant]
  6. AMBIEN [Concomitant]
  7. IMITREX [Concomitant]
     Indication: MIGRAINE
     Route: 014

REACTIONS (2)
  - ABDOMINAL DISTENSION [None]
  - DISCOMFORT [None]
